FAERS Safety Report 16425344 (Version 8)
Quarter: 2022Q3

REPORT INFORMATION
  Report Type: Report from Study
  Country: US (occurrence: None)
  Receive Date: 20190613
  Receipt Date: 20220715
  Transmission Date: 20221027
  Serious: Yes (Hospitalization)
  Sender: FDA-Public Use
  Company Number: US-ROCHE-2334749

PATIENT
  Age: 68 Year
  Sex: Female
  Weight: 86.2 kg

DRUGS (22)
  1. PLACEBO [Suspect]
     Active Substance: UNSPECIFIED INGREDIENT
     Indication: Ovarian cancer
     Dosage: MOST RECENT DOSE ON 28/APR/2019 ?MOST RECENT DOSE ON 28/MAY/2019
     Route: 042
     Dates: start: 20180709
  2. PACLITAXEL [Suspect]
     Active Substance: PACLITAXEL
     Indication: Ovarian cancer
     Dosage: MOST RECENT DOSE ON 29/OCT/2018, 198 MG
     Route: 042
     Dates: start: 20180709
  3. CARBOPLATIN [Suspect]
     Active Substance: CARBOPLATIN
     Indication: Ovarian cancer
     Dosage: MOST RECENT DOSE ON 29/OCT/2018, 570 MG
     Route: 042
     Dates: start: 20180709
  4. BEVACIZUMAB [Suspect]
     Active Substance: BEVACIZUMAB
     Indication: Ovarian cancer
     Dosage: MOST RECENT DOSE ON 28/MAY/2019, 1259 MG
     Route: 042
     Dates: start: 20180806
  5. SIMVASTATIN [Concomitant]
     Active Substance: SIMVASTATIN
     Indication: Hypercholesterolaemia
     Dates: start: 20180521
  6. ALBUTEROL [Concomitant]
     Active Substance: ALBUTEROL
     Indication: Chronic obstructive pulmonary disease
     Dates: start: 20180521
  7. AMITRIPTYLINE [Concomitant]
     Active Substance: AMITRIPTYLINE
     Indication: Depression
     Dates: start: 20180521
  8. ASPIRIN [Concomitant]
     Active Substance: ASPIRIN
     Indication: Prophylaxis
     Dates: start: 20180529
  9. IBUPROFEN [Concomitant]
     Active Substance: IBUPROFEN
     Indication: Pain
     Dates: start: 20180602
  10. ACETAMINOPHEN [Concomitant]
     Active Substance: ACETAMINOPHEN
     Indication: Pain
     Dates: start: 20180602
  11. COLACE [Concomitant]
     Active Substance: DOCUSATE SODIUM
     Indication: Constipation
     Dates: start: 20180602
  12. LIDOCAINE\PRILOCAINE [Concomitant]
     Active Substance: LIDOCAINE\PRILOCAINE
     Dates: start: 20180717
  13. HYDROCHLOROTHIAZIDE\LOSARTAN [Concomitant]
     Active Substance: HYDROCHLOROTHIAZIDE\LOSARTAN
     Indication: Hypertension
     Dates: start: 20180605
  14. METOPROLOL [Concomitant]
     Active Substance: METOPROLOL
     Indication: Hypertension
     Dates: start: 20180531
  15. ZOLPIDEM [Concomitant]
     Active Substance: ZOLPIDEM TARTRATE
     Indication: Insomnia
     Dates: start: 20180808
  16. ONDANSETRON [Concomitant]
     Active Substance: ONDANSETRON
     Indication: Nausea
     Dates: start: 20180709
  17. PROCHLORPERAZINE [Concomitant]
     Active Substance: PROCHLORPERAZINE
     Indication: Nausea
     Dates: start: 20180709
  18. GABAPENTIN [Concomitant]
     Active Substance: GABAPENTIN
     Indication: Peripheral sensory neuropathy
     Dates: start: 20180828
  19. CLOBETASOL [Concomitant]
     Active Substance: CLOBETASOL
     Indication: Rash
     Dosage: 0.05 UNIT OTHER
     Route: 061
     Dates: start: 20180913, end: 20191105
  20. AMBIEN [Concomitant]
     Active Substance: ZOLPIDEM TARTRATE
     Indication: Insomnia
     Dates: start: 20180808
  21. ASPIRIN [Concomitant]
     Active Substance: ASPIRIN
     Route: 048
     Dates: start: 20190606
  22. ATORVASTATIN [Concomitant]
     Active Substance: ATORVASTATIN
     Route: 048
     Dates: start: 20190608

REACTIONS (1)
  - Ataxia [Recovered/Resolved]

NARRATIVE: CASE EVENT DATE: 20190601
